FAERS Safety Report 16366024 (Version 1)
Quarter: 2019Q2

REPORT INFORMATION
  Report Type: Spontaneous
  Country: SE (occurrence: SE)
  Receive Date: 20190529
  Receipt Date: 20190529
  Transmission Date: 20190711
  Serious: Yes (Disabling, Other)
  Sender: FDA-Public Use
  Company Number: SE-SA-2019SA144712

PATIENT
  Age: 55 Year
  Sex: Male

DRUGS (1)
  1. AUBAGIO [Suspect]
     Active Substance: TERIFLUNOMIDE
     Indication: MULTIPLE SCLEROSIS
     Dosage: 14 MG
     Dates: start: 20171107, end: 20190509

REACTIONS (2)
  - Cerebrovascular accident [Recovering/Resolving]
  - Malignant hypertension [Recovering/Resolving]

NARRATIVE: CASE EVENT DATE: 20190506
